FAERS Safety Report 9518047 (Version 1)
Quarter: 2013Q1

REPORT INFORMATION
  Report Type: Spontaneous
  Country: US (occurrence: None)
  Receive Date: 20130305
  Receipt Date: 20130305
  Transmission Date: 20140127
  Serious: Yes (Hospitalization)
  Sender: FDA-Public Use
  Company Number: 163-21880-12120949

PATIENT
  Age: 81 Year
  Sex: Female

DRUGS (9)
  1. REVLIMID [Suspect]
     Indication: MYELODYSPLASTIC SYNDROME
     Dosage: 2.5 MG, 21 IN 21 D, PO - TEMPORARILY INTERRUPTED
     Route: 048
     Dates: start: 20120830
  2. VITAMIN D-3 [Concomitant]
  3. VITAMIN C [Concomitant]
  4. VITAMIN B-6 (PYRIDOXINE HYDROCHLORIDE) [Concomitant]
  5. SLOW FE (FERROUS SULFATE) [Concomitant]
  6. RANITIDINE HCL (RANITIDINE HYDROCHLORIDE) [Concomitant]
  7. PROCRIT [Concomitant]
  8. PRESERVISION AREDS (VITEYES) [Concomitant]
  9. ONGLYZA (SAXAGLIPTIN HYDROCHLORIDE) [Concomitant]

REACTIONS (1)
  - Cerebrovascular accident [None]
